FAERS Safety Report 5164503-7 (Version None)
Quarter: 2006Q4

REPORT INFORMATION
  Report Type: 
  Country: None (occurrence: None)
  Receive Date: 20061127
  Receipt Date: 20060927
  Transmission Date: 20070319
  Serious: Yes (Death)
  Sender: FDA-Public Use
  Company Number: 2006SP003308

PATIENT
  Age: 83 Year
  Sex: Female

DRUGS (6)
  1. ISOSORBIDE MONONITRATE [Suspect]
     Indication: DRUG USE FOR UNKNOWN INDICATION
  2. PROTONIX [Concomitant]
  3. BETAPACE [Concomitant]
  4. LIPITOR [Concomitant]
  5. DITROPAN [Concomitant]
  6. NORVASC [Concomitant]

REACTIONS (1)
  - DEATH [None]
